FAERS Safety Report 7887771-7 (Version None)
Quarter: 2011Q4

REPORT INFORMATION
  Report Type: 
  Country: None (occurrence: None)
  Receive Date: 20111103
  Receipt Date: 20111025
  Transmission Date: 20120403
  Serious: Yes (Other)
  Sender: FDA-Public Use
  Company Number: US-JNJFOC-20111011446

PATIENT
  Age: 16 Year
  Sex: Male

DRUGS (2)
  1. HUMIRA [Suspect]
     Indication: COLITIS ULCERATIVE
     Route: 065
  2. INFLIXIMAB, RECOMBINANT [Suspect]
     Indication: COLITIS ULCERATIVE
     Dosage: PATIENT HAD RECEIVED 14 MONTHS OF INFLIXIMAB, RECOMBINANT TREATMENT
     Route: 042
     Dates: end: 20100701

REACTIONS (2)
  - PSORIASIS [None]
  - DRUG SPECIFIC ANTIBODY PRESENT [None]
